FAERS Safety Report 6937530-4 (Version None)
Quarter: 2010Q3

REPORT INFORMATION
  Report Type: 
  Country: None (occurrence: None)
  Receive Date: 20100823
  Receipt Date: 20100823
  Transmission Date: 20110219
  Serious: Yes (Life-Threatening, Hospitalization, Other)
  Sender: FDA-Public Use
  Company Number: None

PATIENT
  Age: 85 Year
  Sex: Female
  Weight: 49.4421 kg

DRUGS (1)
  1. FOSAMAX [Suspect]

REACTIONS (18)
  - ABDOMINAL PAIN [None]
  - AMNESIA [None]
  - ARTHRALGIA [None]
  - BONE PAIN [None]
  - COUGH [None]
  - DIARRHOEA [None]
  - DIZZINESS [None]
  - DYSPEPSIA [None]
  - EAR DISORDER [None]
  - EYE DISORDER [None]
  - FLATULENCE [None]
  - HIP FRACTURE [None]
  - INFLUENZA [None]
  - MYALGIA [None]
  - NAUSEA [None]
  - RHINORRHOEA [None]
  - SINUS DISORDER [None]
  - VERTIGO [None]
